FAERS Safety Report 5922427-9 (Version None)
Quarter: 2008Q4

REPORT INFORMATION
  Report Type: 
  Country: None (occurrence: None)
  Receive Date: 20081017
  Receipt Date: 20081008
  Transmission Date: 20090506
  Serious: Yes (Death)
  Sender: FDA-Public Use
  Company Number: JP-SANOFI-SYNTHELABO-A01200812420

PATIENT
  Sex: Male
  Weight: 54.6 kg

DRUGS (4)
  1. FLUOROURACIL [Suspect]
     Dosage: UNK
     Route: 041
  2. AVASTIN [Suspect]
     Route: 041
     Dates: start: 20080924, end: 20080924
  3. ELPLAT [Suspect]
     Indication: COLON CANCER
     Dosage: UNK
     Route: 041
  4. LEUCOVORIN CALCIUM [Suspect]
     Dosage: UNK
     Route: 041

REACTIONS (1)
  - GENERAL PHYSICAL HEALTH DETERIORATION [None]
